FAERS Safety Report 7864190-0 (Version None)
Quarter: 2011Q4

REPORT INFORMATION
  Report Type: 
  Country: None (occurrence: None)
  Receive Date: 20111028
  Receipt Date: 20111018
  Transmission Date: 20120403
  Serious: Yes (Hospitalization)
  Sender: FDA-Public Use
  Company Number: US-PFIZER INC-2011249743

PATIENT
  Sex: Male

DRUGS (2)
  1. TORISEL [Suspect]
     Indication: THYROID CANCER
     Dosage: UNK
  2. SORAFENIB [Suspect]
     Indication: THYROID CANCER
     Dosage: UNK

REACTIONS (2)
  - HAEMOPTYSIS [None]
  - PAIN [None]
